FAERS Safety Report 25617506 (Version 1)
Quarter: 2025Q3

REPORT INFORMATION
  Report Type: Spontaneous
  Country: US (occurrence: US)
  Receive Date: 20250729
  Receipt Date: 20250729
  Transmission Date: 20251021
  Serious: No
  Sender: BIOMARIN
  Company Number: US-BIOMARINAP-US-2025-167606

PATIENT
  Age: 4 Year
  Sex: Male

DRUGS (1)
  1. VIMIZIM [Suspect]
     Active Substance: ELOSULFASE ALFA
     Indication: Product used for unknown indication
     Dosage: 30 MILLIGRAM, QW

REACTIONS (3)
  - Injection site pain [Unknown]
  - Crying [Unknown]
  - Underdose [Unknown]

NARRATIVE: CASE EVENT DATE: 20250101
